FAERS Safety Report 11677939 (Version 1)
Quarter: 2015Q4

REPORT INFORMATION
  Report Type: Spontaneous
  Country: US (occurrence: US)
  Receive Date: 20151028
  Receipt Date: 20151028
  Transmission Date: 20160304
  Serious: No
  Sender: FDA-Public Use
  Company Number: US-ELI_LILLY_AND_COMPANY-US201510007273

PATIENT
  Sex: Male

DRUGS (8)
  1. GABAPENTIN. [Concomitant]
     Active Substance: GABAPENTIN
     Dosage: UNKNOWN
  2. LISINOPRIL. [Concomitant]
     Active Substance: LISINOPRIL
     Dosage: UNKNOWN
  3. DAKLINZA [Concomitant]
     Active Substance: DACLATASVIR
     Dosage: UNKNOWN
  4. HUMALOG [Suspect]
     Active Substance: INSULIN LISPRO
     Indication: TYPE 2 DIABETES MELLITUS
     Dosage: UNK, QD
     Route: 065
     Dates: start: 20150829
  5. LANTUS [Concomitant]
     Active Substance: INSULIN GLARGINE
     Dosage: UNKNOWN
  6. SOVALDI [Concomitant]
     Active Substance: SOFOSBUVIR
     Dosage: UNKNOWN
  7. FUROSEMIDE. [Concomitant]
     Active Substance: FUROSEMIDE
     Dosage: UNKNOWN
  8. EPLERENONE. [Concomitant]
     Active Substance: EPLERENONE
     Dosage: UNKNOWN

REACTIONS (2)
  - Contusion [Unknown]
  - Injection site bruising [Unknown]

NARRATIVE: CASE EVENT DATE: 201509
